FAERS Safety Report 10044655 (Version 2)
Quarter: 2014Q1

REPORT INFORMATION
  Report Type: Spontaneous
  Country: US (occurrence: US)
  Receive Date: 20140328
  Receipt Date: 20140328
  Transmission Date: 20141002
  Serious: Yes (Other)
  Sender: FDA-Public Use
  Company Number: US-SHIRE-ALL1-2014-01316

PATIENT
  Age: 7 Year
  Sex: Male
  Weight: 28.12 kg

DRUGS (2)
  1. VYVANSE [Suspect]
     Indication: ATTENTION DEFICIT/HYPERACTIVITY DISORDER
     Dosage: 20 MG, 1X/DAY:QD
     Route: 048
     Dates: start: 20140110, end: 20140207
  2. STROMECTOL [Concomitant]
     Indication: ENTEROBIASIS
     Dosage: 3 MG, ONE DOSE
     Route: 048
     Dates: start: 20140110, end: 20140110

REACTIONS (7)
  - Mental disorder [Recovered/Resolved]
  - Disturbance in social behaviour [Recovered/Resolved]
  - Impulsive behaviour [Recovered/Resolved]
  - Educational problem [Recovered/Resolved]
  - Anger [Recovered/Resolved]
  - Crying [Recovered/Resolved]
  - Aggression [Recovered/Resolved]
